FAERS Safety Report 7657373 (Version 3)
Quarter: 2013Q1

REPORT INFORMATION
  Report Type: Spontaneous
  Country: US (occurrence: US)
  Receive Date: 20101105
  Receipt Date: 20130315
  Transmission Date: 20140127
  Serious: Yes (Hospitalization)
  Sender: FDA-Public Use
  Company Number: US-BAYER-201039165NA

PATIENT
  Age: 43 Year
  Sex: Female
  Weight: 101.82 kg

DRUGS (26)
  1. YASMIN [Suspect]
     Route: 048
     Dates: start: 20051103, end: 20060307
  2. ADVIL [Concomitant]
  3. ALEVE [Concomitant]
     Dates: start: 2000, end: 20100615
  4. POTASSIUM-SPARING AGENTS [Concomitant]
  5. DIAMOX [Concomitant]
     Indication: CSF TEST ABNORMAL
     Dosage: 500 MG (DAILY DOSE), BID, ORAL
     Route: 048
  6. DIAMOX [Concomitant]
     Indication: INTRACRANIAL PRESSURE INCREASED
  7. K-DUR [Concomitant]
     Indication: ELECTROLYTE SUBSTITUTION THERAPY
     Dosage: 20 MEQ (DAILY DOSE), BID,
  8. SYNTHROID [Concomitant]
     Indication: HYPOTHYROIDISM
     Dosage: 200 MCG
     Route: 048
  9. CYTOMEL [Concomitant]
     Indication: HYPOTHYROIDISM
     Dosage: 25 MCG
     Route: 048
  10. CORTEF [Concomitant]
     Indication: ENDOCRINE DISORDER
     Dosage: 2 PILLS AM + 1 PM
     Route: 048
  11. AVANDAMET [Concomitant]
     Indication: GLUCOSE TOLERANCE IMPAIRED
     Dosage: 4/1000 IN AM
  12. PRECOSE [Concomitant]
     Indication: ENDOCRINE DISORDER
     Dosage: 25 MG (DAILY DOSE), , ORAL
     Route: 048
  13. TESTOSTERONE [Concomitant]
     Indication: BLOOD TESTOSTERONE DECREASED
     Dosage: 1.2 MG (DAILY DOSE), ,
  14. ACTONEL [Concomitant]
     Indication: BONE LOSS
  15. B12 [Concomitant]
     Dosage: 1000 MCG
     Dates: start: 20060228
  16. FOLIC ACID [Concomitant]
     Dosage: 1 MG (DAILY DOSE), OW,
     Dates: start: 20060228
  17. NEXIUM [Concomitant]
     Indication: GASTROOESOPHAGEAL REFLUX DISEASE
     Dosage: 20 MG (DAILY DOSE), BID, ORAL
     Route: 048
  18. NEXIUM [Concomitant]
     Indication: DYSPEPSIA
  19. ESKALITH-CR [Concomitant]
     Indication: BIPOLAR DISORDER
     Dosage: 450 MG (DAILY DOSE), BID,
  20. ALLEGRA [Concomitant]
     Indication: HYPERSENSITIVITY
     Dosage: 60 MG (DAILY DOSE), BID, ORAL
     Route: 048
  21. DARVOCET-N [Concomitant]
     Indication: PAIN
     Dosage: UP TO 3 DAILY
     Route: 048
  22. NORCO [Concomitant]
     Indication: PAIN
     Dosage: 7.5/200
     Route: 048
  23. DIAMOX [ACETAZOLAMIDE] [Concomitant]
     Dosage: 500 MG (DAILY DOSE), BID, ORAL
     Route: 048
  24. TESTOGEL [Concomitant]
     Dosage: 1.2 MG (DAILY DOSE), ,
  25. VITAMIN C [ASCORBIC ACID] [Concomitant]
     Dosage: UNK
     Dates: start: 2001, end: 2010
  26. NSAID^S [Concomitant]
     Dosage: UNK
     Dates: start: 2000, end: 2010

REACTIONS (4)
  - Deep vein thrombosis [None]
  - Pain in extremity [None]
  - Local swelling [None]
  - Off label use [None]
